FAERS Safety Report 21606840 (Version 1)
Quarter: 2022Q4

REPORT INFORMATION
  Report Type: Report from Study
  Country: US (occurrence: US)
  Receive Date: 20221117
  Receipt Date: 20221117
  Transmission Date: 20230113
  Serious: No
  Sender: FDA-Public Use
  Company Number: US-ABBVIE-4203192

PATIENT
  Age: 44 Year
  Sex: Female

DRUGS (11)
  1. HUMIRA [Suspect]
     Active Substance: ADALIMUMAB
     Indication: Colitis ulcerative
     Route: 058
     Dates: start: 20120301, end: 20210812
  2. MELATONIN [Concomitant]
     Active Substance: MELATONIN
     Indication: Sleep disorder
     Dosage: TIME INTERVAL: AS NECESSARY
     Route: 048
     Dates: start: 20161212
  3. FOLIC ACID [Concomitant]
     Active Substance: FOLIC ACID
     Indication: General physical health deterioration
     Dosage: DOSAGE: 800 MCG
     Route: 048
     Dates: start: 20170125
  4. SERTRALINE [Concomitant]
     Active Substance: SERTRALINE HYDROCHLORIDE
     Indication: Anxiety
     Route: 048
     Dates: start: 20191125
  5. LORAZEPAM [Concomitant]
     Active Substance: LORAZEPAM
     Indication: Anxiety
     Dosage: TIME INTERVAL: AS NECESSARY
     Route: 048
     Dates: start: 20171018
  6. AZELASTINE [Concomitant]
     Active Substance: AZELASTINE
     Indication: Rhinitis allergic
     Dosage: DOSAGETIME INTERVAL: AS NECESSARY: 137 MCG
     Route: 045
     Dates: start: 20190410
  7. PREDNISONE [Concomitant]
     Active Substance: PREDNISONE
     Indication: Lupus-like syndrome
     Route: 048
     Dates: start: 20210813
  8. STELARA [Concomitant]
     Active Substance: USTEKINUMAB
     Indication: Colitis ulcerative
     Route: 058
     Dates: start: 20220309
  9. DICLOFENAC [Concomitant]
     Active Substance: DICLOFENAC
     Indication: Ankylosing spondylitis
     Dosage: TIME INTERVAL: AS NECESSARY
     Route: 061
     Dates: start: 20161207
  10. CYCLOBENZAPRINE [Concomitant]
     Active Substance: CYCLOBENZAPRINE
     Indication: Sacroiliitis
     Dosage: TIME INTERVAL: AS NECESSARY
     Route: 048
     Dates: start: 20190204
  11. CHOLECALCIFEROL [Concomitant]
     Active Substance: CHOLECALCIFEROL
     Indication: General physical health deterioration
     Route: 048
     Dates: start: 2012

REACTIONS (1)
  - Urinary tract infection [Recovered/Resolved]

NARRATIVE: CASE EVENT DATE: 20220704
